FAERS Safety Report 6619341-2 (Version None)
Quarter: 2010Q1

REPORT INFORMATION
  Report Type: 
  Country: None (occurrence: None)
  Receive Date: 20100308
  Receipt Date: 20090629
  Transmission Date: 20100710
  Serious: No
  Sender: FDA-Public Use
  Company Number: US-TYCO HEALTHCARE/MALLINCKRODT-T200901358

PATIENT
  Sex: Female

DRUGS (5)
  1. RESTORIL [Suspect]
  2. PAXIL [Concomitant]
  3. METHYLDOPA [Concomitant]
  4. BENICAR [Concomitant]
  5. ASPIRIN [Concomitant]

REACTIONS (2)
  - ANXIETY [None]
  - DYSKINESIA [None]
